FAERS Safety Report 22303829 (Version 1)
Quarter: 2023Q2

REPORT INFORMATION
  Report Type: Spontaneous
  Country: IT (occurrence: IT)
  Receive Date: 20230510
  Receipt Date: 20230510
  Transmission Date: 20230722
  Serious: Yes (Other)
  Sender: FDA-Public Use
  Company Number: IT-SUN PHARMACEUTICAL INDUSTRIES LTD-2023RR-387556

PATIENT
  Sex: Female

DRUGS (7)
  1. BISOPROLOL [Suspect]
     Active Substance: BISOPROLOL
     Indication: Hypertensive crisis
     Dosage: 2.5 MILLIGRAM, BID
     Route: 065
  2. LABETALOL [Suspect]
     Active Substance: LABETALOL\LABETALOL HYDROCHLORIDE
     Indication: Hypertensive crisis
     Dosage: 0.3 MICROMOLE PER KILOGRAM/H
     Route: 042
  3. DOXAZOSIN [Suspect]
     Active Substance: DOXAZOSIN MESYLATE
     Indication: Hypertensive crisis
     Dosage: 2 MILLIGRAM, BID
     Route: 065
  4. METHYLDOPA [Suspect]
     Active Substance: METHYLDOPA
     Indication: Hypertensive crisis
     Dosage: 250 MILLIGRAM, BID, FIRST 72 H
     Route: 065
  5. METHYLDOPA [Suspect]
     Active Substance: METHYLDOPA
     Dosage: UNK
  6. CLONIDINE [Suspect]
     Active Substance: CLONIDINE
     Indication: Hypertensive crisis
     Dosage: 5 MILLIGRAM, BY THE THIRD DAY
     Route: 065
  7. AMLODIPINE [Suspect]
     Active Substance: AMLODIPINE BESYLATE
     Indication: Hypertensive crisis
     Dosage: 5 MILLIGRAM, BID
     Route: 065

REACTIONS (1)
  - Drug ineffective [Unknown]
